FAERS Safety Report 4497369-9 (Version None)
Quarter: 2004Q4

REPORT INFORMATION
  Report Type: 
  Country: None (occurrence: None)
  Receive Date: 20041104
  Receipt Date: 20041028
  Transmission Date: 20050328
  Serious: Yes (Hospitalization)
  Sender: FDA-Public Use
  Company Number: US-JNJFOC-20041008274

PATIENT
  Age: 81 Year
  Sex: Female

DRUGS (2)
  1. EXTRA STRENGTH TYLENOL [Suspect]
     Indication: ARTHRALGIA
     Dosage: 1000MG THREE TO FOUR TIMES DAILY FOR MANY YEARS
  2. OTHER MEDICATIONS (ALL OTHER THERAPEUTIC PRODUCTS) [Concomitant]

REACTIONS (2)
  - CONSTIPATION [None]
  - DIARRHOEA [None]
